FAERS Safety Report 23768065 (Version 1)
Quarter: 2024Q2

REPORT INFORMATION
  Report Type: Spontaneous
  Country: US (occurrence: None)
  Receive Date: 20240419
  Receipt Date: 20240419
  Transmission Date: 20240716
  Serious: No
  Sender: FDA-Public Use
  Company Number: None

PATIENT
  Age: 53 Year
  Sex: Female
  Weight: 74.25 kg

DRUGS (7)
  1. AIMOVIG [Suspect]
     Active Substance: ERENUMAB-AOOE
     Indication: Migraine
     Dosage: 1 INJECTION  30 DAYS INTRAMUSCULAR
     Route: 030
     Dates: start: 20240305, end: 20240405
  2. ESTRADIOL [Concomitant]
  3. GABAPENTIN [Concomitant]
  4. TOPAMAX [Concomitant]
     Active Substance: TOPIRAMATE
  5. VITAMIN D3 [Concomitant]
     Active Substance: CHOLECALCIFEROL
  6. VITAMINS [Concomitant]
     Active Substance: VITAMINS
  7. Calcium Iron [Concomitant]

REACTIONS (4)
  - Influenza [None]
  - Drug ineffective [None]
  - Hypertonic bladder [None]
  - Fungal infection [None]

NARRATIVE: CASE EVENT DATE: 20240305
